FAERS Safety Report 6530933-1 (Version None)
Quarter: 2010Q1

REPORT INFORMATION
  Report Type: 
  Country: None (occurrence: None)
  Receive Date: 20100108
  Receipt Date: 20090616
  Transmission Date: 20100710
  Serious: No
  Sender: FDA-Public Use
  Company Number: A0791768A

PATIENT
  Age: 37 Year
  Sex: Male

DRUGS (4)
  1. LOVAZA [Suspect]
     Dosage: 2CAP PER DAY
     Route: 048
  2. HYDROCHLOROTHIAZIDE [Concomitant]
  3. MULTI-VITAMIN [Concomitant]
  4. BETA BLOCKER [Concomitant]

REACTIONS (1)
  - RESTLESS LEGS SYNDROME [None]
